FAERS Safety Report 5143046-0 (Version None)
Quarter: 2006Q4

REPORT INFORMATION
  Report Type: 
  Country: None (occurrence: None)
  Receive Date: 20061103
  Receipt Date: 20060621
  Transmission Date: 20070319
  Serious: Yes (Hospitalization, Other)
  Sender: FDA-Public Use
  Company Number: US-ELI_LILLY_AND_COMPANY-US200609006620

PATIENT
  Age: 54 Year
  Sex: Female
  Weight: 77.097 kg

DRUGS (4)
  1. ZYPREXA [Suspect]
     Dosage: UNK, UNK
     Route: 065
     Dates: start: 20021025, end: 20060501
  2. RISPERIDONE [Concomitant]
     Dates: start: 20021001
  3. DIVALPROEX SODIUM [Concomitant]
     Dosage: UNK, UNK
     Dates: start: 20030201
  4. LITHIUM CARBONATE [Concomitant]
     Dates: start: 20030201

REACTIONS (6)
  - BILIARY TRACT DISORDER [None]
  - BLOOD CHOLESTEROL ABNORMAL [None]
  - DIABETES MELLITUS [None]
  - DIABETIC COMA [None]
  - MYOCARDIAL INFARCTION [None]
  - MYOCARDIAL ISCHAEMIA [None]
